FAERS Safety Report 13337521 (Version 1)
Quarter: 2017Q1

REPORT INFORMATION
  Report Type: Spontaneous
  Country: IT (occurrence: IT)
  Receive Date: 20170315
  Receipt Date: 20170315
  Transmission Date: 20170428
  Serious: Yes (Other)
  Sender: FDA-Public Use
  Company Number: IT-TEVA-749307ACC

PATIENT
  Age: 46 Year
  Sex: Female
  Weight: 52 kg

DRUGS (5)
  1. MESNA. [Concomitant]
     Active Substance: MESNA
     Indication: PRODUCT USED FOR UNKNOWN INDICATION
     Dosage: 3000 MG/M2
     Route: 042
  2. ZARZIO -  30MU (60MU/ML) SOLUZIONE INIETTABILE O PER INFUSIONE [Concomitant]
     Indication: COLONY STIMULATING FACTOR PROPHYLAXIS
     Dosage: 30 IU, LESS THAN 100
  3. VINCRISTINE [Suspect]
     Active Substance: VINCRISTINE
     Indication: EMBRYONAL RHABDOMYOSARCOMA
     Dosage: 2 MG CYCLICAL
     Route: 042
     Dates: start: 20170207, end: 20170207
  4. DOXORUBICIN HYDROCHLORIDE. [Suspect]
     Active Substance: DOXORUBICIN HYDROCHLORIDE
     Indication: EMBRYONAL RHABDOMYOSARCOMA
     Dosage: 25 MG/M2 CYCLICAL
     Route: 042
     Dates: start: 20170207, end: 20170208
  5. IFOSFAMIDE. [Suspect]
     Active Substance: IFOSFAMIDE
     Indication: EMBRYONAL RHABDOMYOSARCOMA
     Dosage: 3000 MG/M2 CYCLICAL
     Route: 042
     Dates: start: 20170207, end: 20170208

REACTIONS (3)
  - Neutropenia [Recovered/Resolved]
  - Thrombocytopenia [Recovered/Resolved]
  - Anaemia [Recovered/Resolved]

NARRATIVE: CASE EVENT DATE: 20170217
